FAERS Safety Report 5896192-8 (Version None)
Quarter: 2008Q3

REPORT INFORMATION
  Report Type: 
  Country: None (occurrence: None)
  Receive Date: 20080924
  Receipt Date: 20070821
  Transmission Date: 20090109
  Serious: Yes (Other)
  Sender: FDA-Public Use
  Company Number: US-ASTRAZENECA-2007UW18207

PATIENT
  Age: 30 Year
  Sex: Female
  Weight: 95.3 kg

DRUGS (5)
  1. SEROQUEL [Suspect]
     Route: 048
  2. SEROQUEL [Suspect]
     Route: 048
     Dates: start: 20030210, end: 20070717
  3. FLUOXETINE [Concomitant]
  4. VERAPAMIL [Concomitant]
     Indication: BLOOD PRESSURE
  5. ZOLMITRIPTAN [Concomitant]

REACTIONS (2)
  - OVERDOSE [None]
  - RESTLESS LEGS SYNDROME [None]
